FAERS Safety Report 4833156-7 (Version None)
Quarter: 2005Q4

REPORT INFORMATION
  Report Type: 
  Country: None (occurrence: None)
  Receive Date: 20051117
  Receipt Date: 20051107
  Transmission Date: 20060501
  Serious: Yes (Hospitalization, Other)
  Sender: FDA-Public Use
  Company Number: 2005145659

PATIENT
  Age: 70 Year
  Sex: Female
  Weight: 109.7705 kg

DRUGS (4)
  1. CELEBREX [Suspect]
     Indication: ARTHRITIS
     Dosage: 200 MG (200 MG,  1 IN 1 D)
     Dates: start: 20010101
  2. NEURONTIN [Suspect]
     Indication: DIFFICULTY IN WALKING
     Dosage: 900 MG (300 MG, 3 IN 1 D)
     Dates: start: 20040101
  3. LANOXIN [Concomitant]
  4. NEXIUM [Concomitant]

REACTIONS (3)
  - DIABETES MELLITUS [None]
  - DYSPNOEA [None]
  - OXYGEN SATURATION DECREASED [None]
